FAERS Safety Report 7388494-3 (Version None)
Quarter: 2011Q2

REPORT INFORMATION
  Report Type: 
  Country: None (occurrence: None)
  Receive Date: 20110401
  Receipt Date: 20110328
  Transmission Date: 20111010
  Serious: Yes (Hospitalization)
  Sender: FDA-Public Use
  Company Number: US-BRISTOL-MYERS SQUIBB COMPANY-15642036

PATIENT
  Age: 62 Year
  Sex: Male
  Weight: 81 kg

DRUGS (4)
  1. CARBOPLATIN [Suspect]
     Indication: NON-SMALL CELL LUNG CANCER
     Dosage: LAST ADMINISTERED:15MAR2011 COURSE:37 AUC=2DAYS 1,8,15,22,29,26,43
     Dates: start: 20110201
  2. NAPROXEN [Concomitant]
  3. TAXOL [Suspect]
     Indication: NON-SMALL CELL LUNG CANCER
     Dosage: LAST ADMINISTERED:15MAR2011 45MG/M2 1,8,15,22,29,26,43 COURSE:37
     Dates: start: 20110201
  4. LORTAB [Concomitant]

REACTIONS (7)
  - NAUSEA [None]
  - FATIGUE [None]
  - OESOPHAGITIS [None]
  - DECREASED APPETITE [None]
  - OESOPHAGEAL PAIN [None]
  - DYSPHAGIA [None]
  - DYSPEPSIA [None]
